FAERS Safety Report 18193024 (Version 3)
Quarter: 2020Q4

REPORT INFORMATION
  Report Type: Spontaneous
  Country: US (occurrence: US)
  Receive Date: 20200825
  Receipt Date: 20201007
  Transmission Date: 20210113
  Serious: Yes (Other)
  Sender: FDA-Public Use
  Company Number: US-HORIZON-TEP-1505-2020

PATIENT
  Age: 55 Year
  Sex: Female

DRUGS (17)
  1. MACROBID [Concomitant]
     Active Substance: NITROFURANTOIN\NITROFURANTOIN MONOHYDRATE
     Indication: URINARY TRACT INFECTION
     Dates: end: 20200813
  2. ALBUTEROL 2.5MG/3ML [Concomitant]
     Indication: ASTHMA
  3. FLUTICASONE-SALMETEROL 250-50?G/DOSE INHALER [Concomitant]
     Indication: ASTHMA
  4. CLINDAMYCIN. [Concomitant]
     Active Substance: CLINDAMYCIN
     Dosage: TWICE A DAY OF UNKNOWN DOSE
     Route: 048
     Dates: start: 20200720, end: 20200828
  5. STEROIDS [Concomitant]
     Active Substance: UNSPECIFIED INGREDIENT
     Dates: start: 20200720
  6. LATANOPROST 0.005% [Concomitant]
     Active Substance: LATANOPROST
     Indication: OCULAR HYPERTENSION
  7. PROGESTERONE. [Concomitant]
     Active Substance: PROGESTERONE
     Indication: HORMONE REPLACEMENT THERAPY
  8. ANTIHISTAMINE [Concomitant]
     Active Substance: ANTIHISTAMINES NOS
     Dates: start: 20200720
  9. BETAMETHASONE CREAM 0.05% [Concomitant]
  10. TEPEZZA [Suspect]
     Active Substance: TEPROTUMUMAB-TRBW
     Indication: ENDOCRINE OPHTHALMOPATHY
     Dosage: START 1/2 DOSE INFUSION, FOLLOWING FULL DOSE
     Route: 042
     Dates: start: 20200626
  11. MEDROL [Concomitant]
     Active Substance: METHYLPREDNISOLONE
     Dates: start: 20200824, end: 20200829
  12. MUPIROCIN. [Suspect]
     Active Substance: MUPIROCIN
     Indication: RASH
     Dates: start: 20200720
  13. ESTRADIOL TRANSDERMAL SYSTEM [Concomitant]
     Active Substance: ESTRADIOL
     Indication: HORMONE REPLACEMENT THERAPY
  14. CLINDAMYCIN. [Concomitant]
     Active Substance: CLINDAMYCIN
     Route: 042
     Dates: start: 20200719, end: 20200719
  15. CORTICOSTEROID [Concomitant]
     Active Substance: CORTICOSTEROID NOS
     Dates: start: 20200824
  16. DORZOLAMIDE-TIMOLOL 0.5%/2% [Concomitant]
     Indication: OCULAR HYPERTENSION
  17. CIPROFLOXACIN. [Concomitant]
     Active Substance: CIPROFLOXACIN
     Indication: DIVERTICULITIS
     Dates: end: 20200705

REACTIONS (5)
  - Skin ulcer [Recovering/Resolving]
  - Dermatitis allergic [Unknown]
  - Muscle spasms [Unknown]
  - Application site irritation [Unknown]
  - Perivascular dermatitis [Recovering/Resolving]

NARRATIVE: CASE EVENT DATE: 20200704
